FAERS Safety Report 10041444 (Version 1)
Quarter: 2014Q1

REPORT INFORMATION
  Report Type: Spontaneous
  Country: DE (occurrence: None)
  Receive Date: 20140325
  Receipt Date: 20140325
  Transmission Date: 20141002
  Serious: Yes (Other)
  Sender: FDA-Public Use
  Company Number: D0082126A

PATIENT
  Age: 44 Year
  Sex: Male

DRUGS (1)
  1. PAROXETINE (PAROXETINE HYDROCHLORIDE HEMIHYDRATE) [Suspect]
     Route: 048

REACTIONS (2)
  - Iridocyclitis [None]
  - Electrocardiogram QT prolonged [None]
